FAERS Safety Report 7280622-3 (Version None)
Quarter: 2011Q1

REPORT INFORMATION
  Report Type: 
  Country: None (occurrence: None)
  Receive Date: 20110203
  Receipt Date: 20110203
  Transmission Date: 20110831
  Serious: Yes (Hospitalization)
  Sender: FDA-Public Use
  Company Number: None

PATIENT
  Age: 52 Year
  Sex: Male
  Weight: 86.1834 kg

DRUGS (1)
  1. NIACIN [Suspect]
     Indication: BLOOD CHOLESTEROL INCREASED
     Dosage: 1 TAB BEFORE BEDTIME PO
     Route: 048
     Dates: start: 20110128, end: 20110201

REACTIONS (1)
  - DRUG HYPERSENSITIVITY [None]
